FAERS Safety Report 9432622 (Version 1)
Quarter: 2013Q3

REPORT INFORMATION
  Report Type: Spontaneous
  Country: US (occurrence: US)
  Receive Date: 20130731
  Receipt Date: 20130731
  Transmission Date: 20140515
  Serious: No
  Sender: FDA-Public Use
  Company Number: US-BAYER-2013-092216

PATIENT
  Age: 71 Year
  Sex: Female
  Weight: 81.63 kg

DRUGS (6)
  1. ALEVE CAPLET [Suspect]
     Indication: ARTHRITIS
     Dosage: 2 DF, ONCE
     Route: 048
     Dates: start: 20130726
  2. TRAZODONE [Concomitant]
  3. RISPERIDONE [Concomitant]
  4. PROZAC [Concomitant]
  5. OMEPRAZOLE [Concomitant]
  6. ST. JOSEPH ASPIRIN [Concomitant]

REACTIONS (1)
  - Drug ineffective [None]
